FAERS Safety Report 4727055-9 (Version None)
Quarter: 2005Q3

REPORT INFORMATION
  Report Type: 
  Country: None (occurrence: None)
  Receive Date: 20050728
  Receipt Date: 20050413
  Transmission Date: 20060218
  Serious: Yes (Hospitalization, Other)
  Sender: FDA-Public Use
  Company Number: 2005AP02287

PATIENT
  Age: 67 Year
  Sex: Male
  Weight: 50.5 kg

DRUGS (11)
  1. IRESSA [Suspect]
     Indication: ADENOSQUAMOUS CELL LUNG CANCER
     Route: 048
     Dates: start: 20050303, end: 20050412
  2. IRESSA [Suspect]
     Indication: NON-SMALL CELL LUNG CANCER
     Route: 048
     Dates: start: 20050303, end: 20050412
  3. SELBEX [Concomitant]
     Indication: GASTRIC ULCER
     Route: 048
     Dates: start: 20040702
  4. ALPRAZOLAM [Concomitant]
     Indication: INSOMNIA
     Route: 048
     Dates: start: 20050117
  5. LUDIOMIL [Concomitant]
     Indication: INSOMNIA
     Route: 048
     Dates: start: 20050117
  6. OMEPRAZOLE [Concomitant]
     Indication: GASTRIC ULCER
     Route: 048
     Dates: start: 20050218
  7. PREDONINE [Concomitant]
     Indication: ADENOSQUAMOUS CELL LUNG CANCER
     Route: 048
     Dates: start: 20050305
  8. MAGNESIUM OXIDE [Concomitant]
     Indication: CONSTIPATION
     Route: 048
     Dates: start: 20050305
  9. ACUATIM [Concomitant]
     Indication: RASH
     Route: 061
     Dates: start: 20050330
  10. EURAX H [Concomitant]
     Indication: RASH
     Route: 048
     Dates: start: 20050330
  11. UREPEARL [Concomitant]
     Indication: RASH
     Route: 061
     Dates: start: 20050330

REACTIONS (6)
  - ANOREXIA [None]
  - GASTRIC CANCER [None]
  - HAEMOLYSIS [None]
  - HYPONATRAEMIA [None]
  - PYREXIA [None]
  - RASH [None]
